FAERS Safety Report 22162759 (Version 2)
Quarter: 2023Q2

REPORT INFORMATION
  Report Type: Spontaneous
  Country: FR (occurrence: FR)
  Receive Date: 20230331
  Receipt Date: 20230411
  Transmission Date: 20230721
  Serious: Yes (Other)
  Sender: FDA-Public Use
  Company Number: FR-CHEPLA-2023003711

PATIENT
  Age: 72 Year
  Sex: Female
  Weight: 59 kg

DRUGS (15)
  1. TUKYSA [Suspect]
     Active Substance: TUCATINIB
     Indication: HER2 positive breast cancer
     Dosage: 3RD CYCLE OF XELODA-TUKYSA-HERCEPTIN IN 5TH LINE
     Route: 065
     Dates: start: 20221207
  2. TUKYSA [Suspect]
     Active Substance: TUCATINIB
     Dosage: 4TH CYCLE OF XELODA-TUKYSA-HERCEPTIN
     Route: 065
     Dates: start: 20230105
  3. TUKYSA [Suspect]
     Active Substance: TUCATINIB
     Dosage: 300 MG, MORNING AND EVENING
     Route: 065
     Dates: start: 20221026, end: 20221207
  4. TUKYSA [Suspect]
     Active Substance: TUCATINIB
     Dosage: 2ND CYCLE XELODA-TUKYSA-HERCEPTIN IN 5TH LINE, MORNING AND EVENING
     Route: 065
     Dates: start: 20221116
  5. TRASTUZUMAB [Suspect]
     Active Substance: TRASTUZUMAB
     Indication: HER2 positive breast cancer
     Dosage: 5TH CYCLE OF XELODA-TUKYSA-HERCEPTIN
     Route: 065
     Dates: start: 20230126
  6. TRASTUZUMAB [Suspect]
     Active Substance: TRASTUZUMAB
     Dosage: 160 MG, QD
     Route: 065
     Dates: start: 20221026
  7. TRASTUZUMAB [Suspect]
     Active Substance: TRASTUZUMAB
     Dosage: 4TH CYCLE OF XELODA-TUKYSA-HERCEPTIN
     Route: 065
     Dates: start: 20230105
  8. TRASTUZUMAB [Suspect]
     Active Substance: TRASTUZUMAB
     Dosage: 3RD CYCLE OF XELODA-TUKYSA-HERCEPTIN IN 5TH LINE
     Route: 065
     Dates: start: 20221207
  9. TRASTUZUMAB [Suspect]
     Active Substance: TRASTUZUMAB
     Dosage: 2ND CYCLE XELODA-TUKYSA-HERCEPTIN IN 5TH LINE,
     Route: 065
     Dates: start: 20221116
  10. CAPECITABINE [Suspect]
     Active Substance: CAPECITABINE
     Indication: HER2 positive breast cancer
     Dosage: 5TH CYCLE OF XELODA-TUKYSA-HERCEPTIN
     Route: 065
     Dates: start: 20230126
  11. CAPECITABINE [Suspect]
     Active Substance: CAPECITABINE
     Dosage: 3RD CYCLE OF XELODA-TUKYSA-HERCEPTIN IN 5TH LINE
     Route: 048
     Dates: start: 20221207
  12. CAPECITABINE [Suspect]
     Active Substance: CAPECITABINE
     Dosage: 1500 MG, MORNING AND EVENING
     Route: 048
     Dates: start: 20221026
  13. CAPECITABINE [Suspect]
     Active Substance: CAPECITABINE
     Dosage: MORNING AND EVENING FROM DAY1 (D1) TO D14
     Route: 065
  14. CAPECITABINE [Suspect]
     Active Substance: CAPECITABINE
     Dosage: 2ND CYCLE XELODA-TUKYSA-HERCEPTIN IN 5TH LINE, MORNING AND EVENING
     Route: 065
     Dates: start: 20221116
  15. CAPECITABINE [Suspect]
     Active Substance: CAPECITABINE
     Dosage: 4TH CYCLE OF XELODA-TUKYSA-HERCEPTIN
     Route: 065
     Dates: start: 20230105

REACTIONS (11)
  - Fatigue [Recovering/Resolving]
  - Diarrhoea [Recovering/Resolving]
  - Aortic valve incompetence [Recovering/Resolving]
  - Lymphopenia [Recovering/Resolving]
  - Palmar-plantar erythrodysaesthesia syndrome [Recovering/Resolving]
  - Cell death [Recovering/Resolving]
  - Dyspepsia [Recovered/Resolved]
  - Carcinoembryonic antigen increased [Unknown]
  - Hyperbilirubinaemia [Recovering/Resolving]
  - Blood lactate dehydrogenase abnormal [Unknown]
  - Gamma-glutamyltransferase abnormal [Unknown]

NARRATIVE: CASE EVENT DATE: 20221116
